FAERS Safety Report 14448469 (Version 1)
Quarter: 2018Q1

REPORT INFORMATION
  Report Type: Spontaneous
  Country: US (occurrence: US)
  Receive Date: 20180126
  Receipt Date: 20180126
  Transmission Date: 20180509
  Serious: No
  Sender: FDA-Public Use
  Company Number: US-SUNOVION-2018SUN000148

PATIENT
  Age: 70 Year
  Sex: Female

DRUGS (2)
  1. LUNESTA [Suspect]
     Active Substance: ESZOPICLONE
     Dosage: TWO 1 MG TABLETS AT NIGHT (TOTAL DOSE OF 2 MG)
     Route: 048
  2. LUNESTA [Suspect]
     Active Substance: ESZOPICLONE
     Dosage: 1 MG AT NIGHT
     Route: 048

REACTIONS (2)
  - Dysgeusia [Unknown]
  - Insomnia [Unknown]
